FAERS Safety Report 16004140 (Version 38)
Quarter: 2024Q1

REPORT INFORMATION
  Report Type: Spontaneous
  Country: CA (occurrence: CA)
  Receive Date: 20190225
  Receipt Date: 20240306
  Transmission Date: 20240410
  Serious: Yes (Hospitalization, Other)
  Sender: FDA-Public Use
  Company Number: CA-CELLTRION INC.-2019CA018861

PATIENT

DRUGS (40)
  1. INFLECTRA [Suspect]
     Active Substance: INFLIXIMAB-DYYB
     Indication: Crohn^s disease
     Dosage: 400 MG AT 0, 2, 6, THEN EVERY 8 WEEKS (WEEK 0: 11MAY2018;  WEEK 2: 25MAY2018)
     Route: 042
     Dates: start: 20180511, end: 20180525
  2. INFLECTRA [Suspect]
     Active Substance: INFLIXIMAB-DYYB
     Dosage: 900 MG (WEEK 6 ON 22JUN2018, THEN EVERY 8 WEEKS)
     Route: 042
     Dates: start: 20180622, end: 20210212
  3. INFLECTRA [Suspect]
     Active Substance: INFLIXIMAB-DYYB
     Dosage: 900 MG, EVERY 8 WEEKS
     Route: 042
     Dates: start: 20181214
  4. INFLECTRA [Suspect]
     Active Substance: INFLIXIMAB-DYYB
     Dosage: 900 MG, EVERY 8 WEEKS
     Route: 042
     Dates: start: 20190208
  5. INFLECTRA [Suspect]
     Active Substance: INFLIXIMAB-DYYB
     Dosage: 900 MG, EVERY 8 WEEKS
     Route: 042
     Dates: start: 20190405
  6. INFLECTRA [Suspect]
     Active Substance: INFLIXIMAB-DYYB
     Dosage: 900 MG, EVERY 8 WEEKS
     Route: 042
     Dates: start: 20190531
  7. INFLECTRA [Suspect]
     Active Substance: INFLIXIMAB-DYYB
     Dosage: 900 MG, EVERY 8 WEEKS
     Route: 042
     Dates: start: 20190802, end: 20190802
  8. INFLECTRA [Suspect]
     Active Substance: INFLIXIMAB-DYYB
     Dosage: 900 MG, EVERY 8 WEEKS
     Route: 042
     Dates: start: 20191122
  9. INFLECTRA [Suspect]
     Active Substance: INFLIXIMAB-DYYB
     Dosage: 900 MG, EVERY 8 WEEKS
     Route: 042
     Dates: start: 20200313
  10. INFLECTRA [Suspect]
     Active Substance: INFLIXIMAB-DYYB
     Dosage: 900 MG, EVERY 8 WEEKS
     Route: 042
     Dates: start: 20200508
  11. INFLECTRA [Suspect]
     Active Substance: INFLIXIMAB-DYYB
     Dosage: 900 MG, EVERY 8 WEEKS
     Route: 042
     Dates: start: 20201023
  12. INFLECTRA [Suspect]
     Active Substance: INFLIXIMAB-DYYB
     Dosage: 900 MG, EVERY 8 WEEKS
     Route: 042
     Dates: start: 20201218
  13. INFLECTRA [Suspect]
     Active Substance: INFLIXIMAB-DYYB
     Dosage: 900 MG, EVERY 8 WEEKS
     Route: 042
     Dates: start: 20210212
  14. INFLECTRA [Suspect]
     Active Substance: INFLIXIMAB-DYYB
     Dosage: 900 MG, EVERY 6 WEEKS
     Route: 042
     Dates: start: 20210409
  15. INFLECTRA [Suspect]
     Active Substance: INFLIXIMAB-DYYB
     Dosage: 900 MG, EVERY 6 WEEKS
     Route: 042
     Dates: start: 20210520
  16. INFLECTRA [Suspect]
     Active Substance: INFLIXIMAB-DYYB
     Dosage: 900 MG, EVERY 6 WEEKS
     Route: 042
     Dates: start: 20210702
  17. INFLECTRA [Suspect]
     Active Substance: INFLIXIMAB-DYYB
     Dosage: 900 MG, EVERY 6 WEEKS
     Route: 042
     Dates: start: 20210813
  18. INFLECTRA [Suspect]
     Active Substance: INFLIXIMAB-DYYB
     Dosage: 900 MG, EVERY 6 WEEKS
     Route: 042
     Dates: start: 20210924
  19. INFLECTRA [Suspect]
     Active Substance: INFLIXIMAB-DYYB
     Dosage: 900 MG, EVERY 6 WEEKS
     Route: 042
     Dates: start: 20211105
  20. INFLECTRA [Suspect]
     Active Substance: INFLIXIMAB-DYYB
     Dosage: 900 MG, EVERY 6 WEEKS
     Route: 042
     Dates: start: 20211217
  21. INFLECTRA [Suspect]
     Active Substance: INFLIXIMAB-DYYB
     Dosage: 900 MG, EVERY 6 WEEKS
     Route: 042
     Dates: start: 20220128
  22. INFLECTRA [Suspect]
     Active Substance: INFLIXIMAB-DYYB
     Dosage: 900 MG, EVERY 6 WEEKS
     Route: 042
     Dates: start: 20220422
  23. INFLECTRA [Suspect]
     Active Substance: INFLIXIMAB-DYYB
     Dosage: 900 MG, EVERY 6 WEEKS
     Route: 042
     Dates: start: 20220603
  24. INFLECTRA [Suspect]
     Active Substance: INFLIXIMAB-DYYB
     Dosage: 900 MG, EVERY 6 WEEKS
     Route: 042
     Dates: start: 20220826
  25. INFLECTRA [Suspect]
     Active Substance: INFLIXIMAB-DYYB
     Dosage: 900 MG, EVERY 6 WEEKS
     Route: 042
     Dates: start: 20221006
  26. INFLECTRA [Suspect]
     Active Substance: INFLIXIMAB-DYYB
     Dosage: 900 MG, EVERY 6 WEEKS
     Route: 042
     Dates: start: 20221118
  27. INFLECTRA [Suspect]
     Active Substance: INFLIXIMAB-DYYB
     Dosage: 900 MG, EVERY 6 WEEKS
     Route: 042
     Dates: start: 20221230
  28. INFLECTRA [Suspect]
     Active Substance: INFLIXIMAB-DYYB
     Dosage: 900 MG, EVERY 6 WEEKS
     Route: 042
     Dates: start: 20230210
  29. INFLECTRA [Suspect]
     Active Substance: INFLIXIMAB-DYYB
     Dosage: 900MG, EVERY 6 WEEKS
     Route: 042
     Dates: start: 20230324
  30. INFLECTRA [Suspect]
     Active Substance: INFLIXIMAB-DYYB
     Dosage: 900MG, EVERY 6 WEEKS
     Route: 042
     Dates: start: 20230505
  31. INFLECTRA [Suspect]
     Active Substance: INFLIXIMAB-DYYB
     Dosage: 900MG, EVERY 6 WEEKS
     Route: 042
     Dates: start: 20230616
  32. INFLECTRA [Suspect]
     Active Substance: INFLIXIMAB-DYYB
     Dosage: 900 MG, EVERY 6 WEEKS (UNK, AFTER 12 WEEKS AND 3 DAYS)
     Route: 042
     Dates: start: 20230911
  33. INFLECTRA [Suspect]
     Active Substance: INFLIXIMAB-DYYB
     Dosage: 900 MG, EVERY 6 WEEKS
     Route: 042
     Dates: start: 20231023
  34. INFLECTRA [Suspect]
     Active Substance: INFLIXIMAB-DYYB
     Dosage: 900 MG, EVERY 6 WEEKS
     Route: 042
     Dates: start: 20231204
  35. INFLECTRA [Suspect]
     Active Substance: INFLIXIMAB-DYYB
     Dosage: 900 MG, EVERY 6 WEEKS 2 DAYS (SUPPOSED TO RECEIVE EVERY 6 WEEKS)
     Route: 042
     Dates: start: 20240117
  36. INFLECTRA [Suspect]
     Active Substance: INFLIXIMAB-DYYB
     Dosage: 900 MG, EVERY 6 WEEKS
     Route: 042
     Dates: start: 20240227
  37. BUDESONIDE [Concomitant]
     Active Substance: BUDESONIDE
     Dosage: UNK
  38. ENTOCORT [Concomitant]
     Active Substance: BUDESONIDE
     Dosage: 9 MG, 1X/DAY
     Route: 065
  39. MESALAMINE [Concomitant]
     Active Substance: MESALAMINE
     Dosage: 1 G, 1X/DAY
     Route: 065
  40. PENTASA [Concomitant]
     Active Substance: MESALAMINE
     Dosage: 1 G, DAILY

REACTIONS (13)
  - Limb injury [Unknown]
  - Foreign body in eye [Recovering/Resolving]
  - Tonsillar hypertrophy [Not Recovered/Not Resolved]
  - Weight fluctuation [Unknown]
  - Heart rate decreased [Not Recovered/Not Resolved]
  - Blood pressure increased [Not Recovered/Not Resolved]
  - Blood pressure diastolic increased [Unknown]
  - Blood pressure systolic increased [Unknown]
  - Blood pressure fluctuation [Unknown]
  - Inappropriate schedule of product administration [Unknown]
  - Off label use [Unknown]
  - Off label use [Unknown]
  - Intentional product use issue [Unknown]

NARRATIVE: CASE EVENT DATE: 20190125
